FAERS Safety Report 19185154 (Version 3)
Quarter: 2022Q2

REPORT INFORMATION
  Report Type: Spontaneous
  Country: US (occurrence: US)
  Receive Date: 20210427
  Receipt Date: 20220510
  Transmission Date: 20220721
  Serious: No
  Sender: FDA-Public Use
  Company Number: US-PFIZER INC-2021235945

PATIENT
  Age: 69 Year
  Sex: Female
  Weight: 79.38 kg

DRUGS (1)
  1. SULFASALAZINE [Suspect]
     Active Substance: SULFASALAZINE
     Indication: Systemic lupus erythematosus
     Dosage: 1 DF, 4X/DAY (4 TABLETS A DAY )
     Dates: start: 2011

REACTIONS (6)
  - Off label use [Unknown]
  - Herpes zoster [Unknown]
  - COVID-19 [Unknown]
  - Body height decreased [Unknown]
  - Memory impairment [Unknown]
  - Arthritis [Unknown]
